FAERS Safety Report 10371276 (Version 2)
Quarter: 2014Q3

REPORT INFORMATION
  Report Type: Spontaneous
  Country: US (occurrence: US)
  Receive Date: 20140808
  Receipt Date: 20140818
  Transmission Date: 20150326
  Serious: Yes (Other)
  Sender: FDA-Public Use
  Company Number: US-LUNDBECK-DKLU1102425

PATIENT
  Weight: 21 kg

DRUGS (10)
  1. SABRIL [Suspect]
     Active Substance: VIGABATRIN
     Route: 048
  2. BANZEL [Concomitant]
     Active Substance: RUFINAMIDE
     Indication: CONVULSION
  3. SABRIL [Suspect]
     Active Substance: VIGABATRIN
     Indication: INFANTILE SPASMS
     Route: 048
     Dates: start: 201405
  4. SABRIL [Suspect]
     Active Substance: VIGABATRIN
     Route: 048
  5. SABRIL [Suspect]
     Active Substance: VIGABATRIN
     Route: 048
  6. SABRIL [Suspect]
     Active Substance: VIGABATRIN
     Route: 048
     Dates: end: 20140730
  7. SABRIL [Suspect]
     Active Substance: VIGABATRIN
     Route: 048
  8. KEPPRA [Concomitant]
     Active Substance: LEVETIRACETAM
     Indication: CONVULSION
  9. SABRIL [Suspect]
     Active Substance: VIGABATRIN
     Route: 048
  10. CLONAZEPAM. [Concomitant]
     Active Substance: CLONAZEPAM
     Indication: CONVULSION

REACTIONS (5)
  - Malaise [Unknown]
  - Urinary tract infection [Unknown]
  - Ear infection [Unknown]
  - Convulsion [Unknown]
  - Pyrexia [Unknown]
